FAERS Safety Report 10395734 (Version 1)
Quarter: 2014Q1

REPORT INFORMATION
  Report Type: Spontaneous
  Country: US (occurrence: None)
  Receive Date: 20130724
  Receipt Date: 20130724
  Transmission Date: 20141002
  Serious: Yes (Hospitalization)
  Sender: FDA-Public Use
  Company Number: PHEH2012US008407

PATIENT
  Age: 63 Year
  Sex: Male
  Weight: 61.7 kg

DRUGS (5)
  1. GLEEVEC [Suspect]
     Indication: GASTROINTESTINAL STROMAL TUMOUR
     Route: 048
     Dates: start: 20120328
  2. GLEEVEC [Suspect]
     Indication: GASTROINTESTINAL STROMAL TUMOUR
     Route: 048
     Dates: start: 20120328
  3. GLEEVEC [Suspect]
     Indication: SOFT TISSUE CANCER
     Route: 048
     Dates: start: 20120328
  4. CREON (AMYLASE, LIPASE, PANCREATIN, PROTEASE) [Concomitant]
  5. FLOMAX ^BOEHRINGER INGELHEIM^ (TAMSULOSIN HYDROCHLORIDE) [Concomitant]

REACTIONS (15)
  - Pneumonia [None]
  - Escherichia infection [None]
  - Malaise [None]
  - Vomiting [None]
  - Hypertension [None]
  - Blood potassium decreased [None]
  - Rhinorrhoea [None]
  - Influenza like illness [None]
  - Nausea [None]
  - Pruritus [None]
  - Insomnia [None]
  - Pyrexia [None]
  - Chills [None]
  - Dysgeusia [None]
  - Fatigue [None]
